FAERS Safety Report 17963177 (Version 4)
Quarter: 2020Q2

REPORT INFORMATION
  Report Type: Report from Study
  Country: US (occurrence: US)
  Receive Date: 20200630
  Receipt Date: 20200630
  Transmission Date: 20200714
  Serious: No
  Sender: FDA-Public Use
  Company Number: US-BIOVITRUM-2019US3146

PATIENT
  Age: 32 Year
  Sex: Female

DRUGS (1)
  1. KINERET [Suspect]
     Active Substance: ANAKINRA
     Indication: ORAL DISORDER
     Route: 058
     Dates: start: 20190819

REACTIONS (11)
  - Injection site erythema [Unknown]
  - Off label use [Unknown]
  - Injection site urticaria [Unknown]
  - Lip blister [Unknown]
  - Lip ulceration [Unknown]
  - Urticaria [Unknown]
  - Injection site swelling [Unknown]
  - Injection site pruritus [Unknown]
  - Intentional overdose [Unknown]
  - Product dose omission [Unknown]
  - Metrorrhagia [Unknown]

NARRATIVE: CASE EVENT DATE: 20190820
